FAERS Safety Report 8698503 (Version 4)
Quarter: 2012Q4

REPORT INFORMATION
  Report Type: 
  Country: US (occurrence: US)
  Receive Date: 20120802
  Receipt Date: 20121129
  Transmission Date: 20130627
  Serious: Yes (Other)
  Sender: FDA-Public Use
  Company Number: US-BAYER-2012-075916

PATIENT
  Age: 56 Year
  Sex: Female

DRUGS (15)
  1. BETASERON [Suspect]
     Indication: MULTIPLE SCLEROSIS
     Dosage: UNK
     Dates: start: 1996
  2. BETASERON [Suspect]
     Indication: MULTIPLE SCLEROSIS
     Dosage: 0.25 mg, QOD
     Route: 058
  3. BETASERON [Suspect]
     Indication: MULTIPLE SCLEROSIS
     Dosage: UNK
     Route: 058
  4. BACLOFEN [Concomitant]
     Indication: SPASTICITY
     Dosage: 20 mg, QID
     Dates: start: 1996
  5. ENABLEX [Concomitant]
     Indication: URINARY INCONTINENCE
     Dosage: 15 mg, QD
     Route: 048
  6. DILANTIN [Concomitant]
     Indication: SEIZURE
     Dosage: 300 mg, QD (1 cap in AM; 2 cap at HS)
     Route: 048
     Dates: start: 2002
  7. SERTRALINE [Concomitant]
     Indication: DEPRESSION
     Dosage: 100 mg, BID
     Route: 048
     Dates: start: 1996
  8. NUVIGIL [Concomitant]
     Dosage: 250 mg, QD
     Route: 048
  9. SYNTHROID [Concomitant]
     Dosage: 0.05 mg, QD
     Route: 048
  10. FOSAMAX [Concomitant]
     Dosage: 70 mg, QD (every Sunday morning)
     Route: 048
  11. CITRACAL [Concomitant]
     Dosage: 1 DF, QD
  12. ONE A DAY [Concomitant]
     Dosage: 1 DF, QD
  13. FISH OIL [Concomitant]
     Dosage: 2 DF, QD (1000 mg capsules)
     Route: 048
  14. CRANBERRY [Concomitant]
     Dosage: 3600 mg, QD
     Route: 048
  15. VITAMIN D [Concomitant]
     Dosage: 1000 iu, QD

REACTIONS (4)
  - Balance disorder [None]
  - Fall [None]
  - Ankle fracture [Recovered/Resolved]
  - Feeling hot [None]
